FAERS Safety Report 21329085 (Version 1)
Quarter: 2022Q3

REPORT INFORMATION
  Report Type: Spontaneous
  Country: US (occurrence: None)
  Receive Date: 20220912
  Receipt Date: 20220912
  Transmission Date: 20221027
  Serious: Yes (unspecified)
  Sender: FDA-Public Use
  Company Number: None

PATIENT
  Sex: Female
  Weight: 52.65 kg

DRUGS (10)
  1. MAGNESIUM CITRATE [Suspect]
     Active Substance: MAGNESIUM CITRATE
     Indication: Constipation
     Dosage: FREQUENCY : AS NEEDED;?
     Route: 048
  2. MAGNESIUM CITRATE [Suspect]
     Active Substance: MAGNESIUM CITRATE
     Indication: Constipation
     Dosage: FREQUENCY : AS NEEDED;?
     Route: 048
  3. Azelastine HCl .01% [Concomitant]
  4. FLUTICASONE PROPIONATE [Concomitant]
     Active Substance: FLUTICASONE PROPIONATE
  5. ALBUTEROL [Concomitant]
     Active Substance: ALBUTEROL
  6. Clobetasol Propionate Ointment .05% [Concomitant]
  7. LIDOCAINE 5% [Concomitant]
     Active Substance: LIDOCAINE
  8. DEVICE [Concomitant]
     Active Substance: DEVICE
  9. Rexali Naturalist Mature Multivitamin [Concomitant]
  10. Green Vibrance with probiotics [Concomitant]

REACTIONS (24)
  - Recalled product administered [None]
  - Product contamination microbial [None]
  - Fatigue [None]
  - Lethargy [None]
  - Hypersomnia [None]
  - Abdominal distension [None]
  - Constipation [None]
  - Gastrointestinal inflammation [None]
  - Gastrointestinal motility disorder [None]
  - Intestinal mass [None]
  - Confusional state [None]
  - Dizziness [None]
  - Heat stroke [None]
  - Feeling hot [None]
  - Skin warm [None]
  - Feeding disorder [None]
  - Nausea [None]
  - Diarrhoea [None]
  - Abnormal faeces [None]
  - Hyperhidrosis [None]
  - Skin odour abnormal [None]
  - Pain [None]
  - Hyperaesthesia [None]
  - Malaise [None]
